FAERS Safety Report 5746463-0 (Version None)
Quarter: 2008Q2

REPORT INFORMATION
  Report Type: 
  Country: None (occurrence: None)
  Receive Date: 20080522
  Receipt Date: 20080513
  Transmission Date: 20081010
  Serious: Yes (Other)
  Sender: FDA-Public Use
  Company Number: B0520474A

PATIENT
  Age: 17 Year
  Sex: Male

DRUGS (4)
  1. AMOXICILLIN [Suspect]
     Indication: DRUG USE FOR UNKNOWN INDICATION
     Route: 048
     Dates: start: 20070603, end: 20070603
  2. ZONISAMIDE [Suspect]
     Route: 048
     Dates: start: 20070502
  3. CARBAMAZEPINE [Suspect]
     Route: 048
     Dates: start: 20070530
  4. LOXOPROFEN SODIUM [Concomitant]
     Dates: start: 20070609, end: 20070615

REACTIONS (8)
  - BLISTER [None]
  - CONJUNCTIVAL HYPERAEMIA [None]
  - DRUG RASH WITH EOSINOPHILIA AND SYSTEMIC SYMPTOMS [None]
  - GENERALISED ERYTHEMA [None]
  - LIP EROSION [None]
  - PYREXIA [None]
  - SKIN EROSION [None]
  - TOXIC EPIDERMAL NECROLYSIS [None]
